FAERS Safety Report 12864458 (Version 1)
Quarter: 2016Q4

REPORT INFORMATION
  Report Type: Spontaneous
  Country: US (occurrence: US)
  Receive Date: 20161020
  Receipt Date: 20161020
  Transmission Date: 20170207
  Serious: No
  Sender: FDA-Public Use
  Company Number: US-TEVA-704775USA

PATIENT
  Age: 54 Year
  Sex: Male

DRUGS (7)
  1. OXYBUTYNIN [Concomitant]
     Active Substance: OXYBUTYNIN
  2. COPAXONE [Suspect]
     Active Substance: GLATIRAMER ACETATE
     Indication: MULTIPLE SCLEROSIS
     Route: 058
     Dates: start: 201405
  3. TIZANIDINE. [Concomitant]
     Active Substance: TIZANIDINE
  4. PREDNISONE. [Concomitant]
     Active Substance: PREDNISONE
  5. BACLOFEN. [Concomitant]
     Active Substance: BACLOFEN
  6. AMANTADINE [Concomitant]
     Active Substance: AMANTADINE
  7. LISINOPRIL. [Concomitant]
     Active Substance: LISINOPRIL

REACTIONS (3)
  - Injection site reaction [Not Recovered/Not Resolved]
  - Fall [Unknown]
  - Fatigue [Unknown]

NARRATIVE: CASE EVENT DATE: 201608
